FAERS Safety Report 8034197-1 (Version None)
Quarter: 2012Q1

REPORT INFORMATION
  Report Type: 
  Country: None (occurrence: None)
  Receive Date: 20120110
  Receipt Date: 20120103
  Transmission Date: 20120608
  Serious: Yes (Life-Threatening, Other)
  Sender: FDA-Public Use
  Company Number: US-JNJFOC-20111009473

PATIENT
  Sex: Male
  Weight: 90.72 kg

DRUGS (4)
  1. REMICADE [Suspect]
     Indication: COLITIS ULCERATIVE
     Route: 042
     Dates: start: 20100301
  2. REMICADE [Suspect]
     Route: 042
     Dates: start: 20100401, end: 20100101
  3. COLAZAL [Concomitant]
     Indication: COLITIS ULCERATIVE
     Dosage: THREE TIMES DAILY
     Route: 048
  4. CANASA [Concomitant]
     Indication: COLITIS ULCERATIVE
     Route: 054

REACTIONS (5)
  - INFUSION RELATED REACTION [None]
  - DRUG HYPERSENSITIVITY [None]
  - FEELING DRUNK [None]
  - EYELID OEDEMA [None]
  - THERAPEUTIC RESPONSE DECREASED [None]
